FAERS Safety Report 8761250 (Version 3)
Quarter: 2012Q4

REPORT INFORMATION
  Report Type: 
  Country: JP (occurrence: JP)
  Receive Date: 20120830
  Receipt Date: 20121030
  Transmission Date: 20130627
  Serious: Yes (Other)
  Sender: FDA-Public Use
  Company Number: JP-GLAXOSMITHKLINE-B0825782A

PATIENT
  Age: 72 Year
  Sex: Female

DRUGS (2)
  1. SERETIDE (50MCG/250MCG) [Suspect]
     Indication: ASTHMA
     Dosage: 250MCG Twice per day
     Route: 055
     Dates: start: 20070630, end: 20120508
  2. SERETIDE (50MCG/250MCG) [Suspect]
     Indication: ASTHMA
     Dosage: 250MCG Twice per day
     Route: 055
     Dates: start: 20120606, end: 20120818

REACTIONS (2)
  - Eosinophilic pneumonia [Recovered/Resolved]
  - Vision blurred [Unknown]
